FAERS Safety Report 17986371 (Version 1)
Quarter: 2020Q3

REPORT INFORMATION
  Report Type: Report from Study
  Country: NZ (occurrence: NZ)
  Receive Date: 20200706
  Receipt Date: 20200706
  Transmission Date: 20201103
  Serious: Yes (Other)
  Sender: FDA-Public Use
  Company Number: NZ-JNJFOC-20200633052

PATIENT

DRUGS (6)
  1. CONCERTA [Suspect]
     Active Substance: METHYLPHENIDATE HYDROCHLORIDE
     Indication: ATTENTION DEFICIT HYPERACTIVITY DISORDER
     Route: 065
  2. RISPERDAL [Suspect]
     Active Substance: RISPERIDONE
     Indication: IRRITABILITY
  3. RISPERDAL [Suspect]
     Active Substance: RISPERIDONE
     Indication: OBSESSIVE-COMPULSIVE DISORDER
  4. RISPERDAL [Suspect]
     Active Substance: RISPERIDONE
     Indication: STEREOTYPY
     Route: 065
  5. RISPERDAL [Suspect]
     Active Substance: RISPERIDONE
     Indication: TIC
  6. RISPERDAL [Suspect]
     Active Substance: RISPERIDONE
     Indication: PSYCHOTIC DISORDER

REACTIONS (23)
  - Sleep disorder [Unknown]
  - Dysphoria [Unknown]
  - Growth retardation [Unknown]
  - Weight fluctuation [Unknown]
  - Sedation [Unknown]
  - Somnolence [Unknown]
  - Hyperprolactinaemia [Unknown]
  - Anxiety [Unknown]
  - Agitation [Unknown]
  - Hypertension [Unknown]
  - Tic [Unknown]
  - Stereotypy [Unknown]
  - Headache [Unknown]
  - Dystonia [Unknown]
  - Tachycardia [Unknown]
  - Appetite disorder [Unknown]
  - Gastrointestinal disorder [Unknown]
  - Tardive dyskinesia [Unknown]
  - Gynaecomastia [Unknown]
  - Abnormal behaviour [Unknown]
  - Anticholinergic syndrome [Unknown]
  - Weight increased [Unknown]
  - Increased appetite [Unknown]
